FAERS Safety Report 21375614 (Version 2)
Quarter: 2022Q4

REPORT INFORMATION
  Report Type: Spontaneous
  Country: RU (occurrence: RU)
  Receive Date: 20220926
  Receipt Date: 20221011
  Transmission Date: 20230113
  Serious: Yes (Life-Threatening)
  Sender: FDA-Public Use
  Company Number: RU-Merck Healthcare KGaA-9352270

PATIENT
  Age: 47 Year
  Sex: Male
  Weight: 46 kg

DRUGS (1)
  1. ERBITUX [Suspect]
     Active Substance: CETUXIMAB
     Indication: Throat cancer
     Dosage: 633 MG, UNK
     Route: 041
     Dates: start: 20220906, end: 20220906

REACTIONS (1)
  - Seizure [Recovered/Resolved]

NARRATIVE: CASE EVENT DATE: 20220906
